FAERS Safety Report 13228931 (Version 1)
Quarter: 2017Q1

REPORT INFORMATION
  Report Type: Report from Study
  Country: IT (occurrence: IT)
  Receive Date: 20170213
  Receipt Date: 20170213
  Transmission Date: 20170428
  Serious: Yes (Other)
  Sender: FDA-Public Use
  Company Number: IT-ROCHE-1889750

PATIENT

DRUGS (1)
  1. RITUXIMAB [Suspect]
     Active Substance: RITUXIMAB
     Indication: IMMUNE THROMBOCYTOPENIC PURPURA
     Route: 042

REACTIONS (11)
  - Urinary tract infection [Unknown]
  - Diffuse large B-cell lymphoma [Unknown]
  - Pneumonia [Unknown]
  - Gastroenteritis [Unknown]
  - Breast hyperplasia [Unknown]
  - Follicular thyroid cancer [Unknown]
  - Skin infection [Unknown]
  - Dyspnoea [Unknown]
  - Lymphomatoid papulosis [Unknown]
  - Hypertension [Unknown]
  - Bronchitis [Unknown]
